FAERS Safety Report 9616812 (Version 1)
Quarter: 2013Q4

REPORT INFORMATION
  Report Type: Spontaneous
  Country: FR (occurrence: FR)
  Receive Date: 20131011
  Receipt Date: 20131011
  Transmission Date: 20140711
  Serious: Yes (Hospitalization, Other)
  Sender: FDA-Public Use
  Company Number: FR-JNJFOC-20131006086

PATIENT
  Age: 75 Year
  Sex: Male

DRUGS (4)
  1. XARELTO [Suspect]
     Indication: THROMBOSIS PROPHYLAXIS
     Route: 048
     Dates: start: 20130910, end: 20130912
  2. APROVEL [Concomitant]
     Indication: HYPERTENSION
     Route: 048
  3. KARDEGIC [Concomitant]
     Route: 048
  4. LOVENOX [Concomitant]
     Indication: THROMBOSIS PROPHYLAXIS
     Route: 058
     Dates: start: 20130909, end: 20130909

REACTIONS (2)
  - Deep vein thrombosis [Recovering/Resolving]
  - Drug ineffective [Unknown]
